FAERS Safety Report 8386558-9 (Version None)
Quarter: 2012Q2

REPORT INFORMATION
  Report Type: 
  Country: None (occurrence: None)
  Receive Date: 20120525
  Receipt Date: 20110719
  Transmission Date: 20120825
  Serious: No
  Sender: FDA-Public Use
  Company Number: US-GLAXOSMITHKLINE-A0937325A

PATIENT
  Age: 48 Year
  Sex: Male

DRUGS (4)
  1. VERAMYST [Suspect]
     Indication: RHINITIS ALLERGIC
     Dosage: 1SPR PER DAY
     Route: 045
     Dates: start: 20110601
  2. CLARITIN [Concomitant]
  3. DIGESTIVE MEDICATION (VITAMIN) [Concomitant]
  4. SUDAFED 12 HOUR [Concomitant]

REACTIONS (1)
  - EPISTAXIS [None]
